FAERS Safety Report 23706546 (Version 1)
Quarter: 2024Q2

REPORT INFORMATION
  Report Type: Spontaneous
  Country: US (occurrence: None)
  Receive Date: 20240403
  Receipt Date: 20240403
  Transmission Date: 20240716
  Serious: Yes (Hospitalization)
  Sender: FDA-Public Use
  Company Number: None

PATIENT
  Age: 52 Year
  Sex: Female

DRUGS (2)
  1. OPSUMIT [Suspect]
     Active Substance: MACITENTAN
     Indication: Pulmonary arterial hypertension
     Dosage: 10 MG DAILY ORAL?
     Route: 048
     Dates: start: 202002
  2. VELETRI [Concomitant]
     Active Substance: EPOPROSTENOL

REACTIONS (7)
  - Dyspnoea [None]
  - Skin discolouration [None]
  - Cold sweat [None]
  - Hyperhidrosis [None]
  - Hyperhidrosis [None]
  - Heart rate increased [None]
  - Chest pain [None]

NARRATIVE: CASE EVENT DATE: 20240401
